FAERS Safety Report 20001209 (Version 1)
Quarter: 2021Q4

REPORT INFORMATION
  Report Type: Spontaneous
  Country: US (occurrence: US)
  Receive Date: 20211026
  Receipt Date: 20211026
  Transmission Date: 20220303
  Serious: Yes (Hospitalization)
  Sender: FDA-Public Use
  Company Number: None

PATIENT
  Age: 36 Year
  Sex: Male
  Weight: 82.8 kg

DRUGS (4)
  1. DEXAMETHASONE [Suspect]
     Active Substance: DEXAMETHASONE
     Dates: end: 20211015
  2. MERCAPTOPURINE [Suspect]
     Active Substance: MERCAPTOPURINE
     Dates: end: 20211018
  3. METHOTREXATE [Suspect]
     Active Substance: METHOTREXATE
     Dates: end: 20211018
  4. VINCRISTINE SULFATE [Suspect]
     Active Substance: VINCRISTINE SULFATE
     Dates: end: 20211011

REACTIONS (10)
  - Pain [None]
  - Fatigue [None]
  - Pyrexia [None]
  - Aspartate aminotransferase increased [None]
  - Alanine aminotransferase increased [None]
  - Myelosuppression [None]
  - Abdominal pain [None]
  - Cholecystitis acute [None]
  - Colitis [None]
  - Enteritis [None]

NARRATIVE: CASE EVENT DATE: 20211018
